FAERS Safety Report 15251612 (Version 1)
Quarter: 2018Q3

REPORT INFORMATION
  Report Type: Spontaneous
  Country: US (occurrence: US)
  Receive Date: 20180807
  Receipt Date: 20180807
  Transmission Date: 20181010
  Serious: No
  Sender: FDA-Public Use
  Company Number: US-MYLANLABS-2018M1030269

PATIENT
  Sex: Female

DRUGS (1)
  1. VALACYCLOVIR [Suspect]
     Active Substance: VALACYCLOVIR HYDROCHLORIDE
     Indication: IMMUNE SYSTEM DISORDER
     Dosage: 1 G, TID
     Route: 048

REACTIONS (3)
  - Lymphadenopathy [Unknown]
  - Drug ineffective [Unknown]
  - Manufacturing materials issue [Unknown]
